FAERS Safety Report 9000925 (Version 1)
Quarter: 2012Q4

REPORT INFORMATION
  Report Type: Spontaneous
  Country: IT (occurrence: None)
  Receive Date: 20121226
  Receipt Date: 20121226
  Transmission Date: 20130627
  Serious: Yes (Hospitalization, Other)
  Sender: FDA-Public Use
  Company Number: AUR-APL-2012-05458

PATIENT
  Age: 52 Year
  Sex: Female

DRUGS (1)
  1. AMOXICILLIN [Suspect]
     Indication: ACUTE BRONCHITIS
     Dosage: ( 2 Dosage forms, 1 D)
     Route: 048
     Dates: start: 20121109, end: 20121112

REACTIONS (5)
  - Angioedema [None]
  - Dysphonia [None]
  - Dyspnoea [None]
  - Erythema [None]
  - Rash generalised [None]
